FAERS Safety Report 5038205-1 (Version None)
Quarter: 2006Q2

REPORT INFORMATION
  Report Type: 
  Country: None (occurrence: None)
  Receive Date: 20060626
  Receipt Date: 20060613
  Transmission Date: 20061013
  Serious: Yes (Death, Hospitalization)
  Sender: FDA-Public Use
  Company Number: CERZ-11251

PATIENT
  Age: 82 Year
  Sex: Male

DRUGS (1)
  1. CEREZYME [Suspect]
     Indication: GAUCHER'S DISEASE
     Dosage: 4800 UNITS Q2WKS IV
     Route: 042
     Dates: start: 20001005, end: 20060518

REACTIONS (3)
  - DISEASE PROGRESSION [None]
  - FALL [None]
  - RENAL FAILURE CHRONIC [None]
